FAERS Safety Report 15193215 (Version 2)
Quarter: 2025Q1

REPORT INFORMATION
  Report Type: Spontaneous
  Country: US (occurrence: US)
  Receive Date: 20180725
  Receipt Date: 20250226
  Transmission Date: 20250408
  Serious: Yes (Hospitalization, Other)
  Sender: ALEXION PHARMACEUTICALS
  Company Number: 2018SE93332

PATIENT

DRUGS (2)
  1. BRILINTA [Suspect]
     Active Substance: TICAGRELOR
     Indication: Stent placement
  2. ATIVAN [Concomitant]
     Active Substance: LORAZEPAM

REACTIONS (11)
  - Arrhythmia [Unknown]
  - Seizure [Unknown]
  - Atrial flutter [Unknown]
  - Atrial fibrillation [Unknown]
  - Tachycardia [Unknown]
  - Chest pain [Unknown]
  - Condition aggravated [Unknown]
  - Chest discomfort [Unknown]
  - Drug ineffective [Unknown]
  - Tongue injury [Unknown]
  - Cardiac disorder [Unknown]
